FAERS Safety Report 7064973-3 (Version None)
Quarter: 2010Q4

REPORT INFORMATION
  Report Type: 
  Country: None (occurrence: None)
  Receive Date: 20101027
  Receipt Date: 19890817
  Transmission Date: 20110411
  Serious: Yes (Death)
  Sender: FDA-Public Use
  Company Number: US-ROCHE-890200777001

PATIENT
  Age: 36 Year
  Sex: Male
  Weight: 109.3 kg

DRUGS (3)
  1. INTERFERON ALFA-2A [Suspect]
     Route: 030
     Dates: start: 19880502, end: 19890912
  2. INTERFERON ALFA-2A [Suspect]
     Route: 030
     Dates: start: 19890415
  3. DARVOCET-N 100 [Concomitant]
     Route: 065
     Dates: start: 19880502

REACTIONS (3)
  - ASPARTATE AMINOTRANSFERASE INCREASED [None]
  - BLOOD LACTATE DEHYDROGENASE INCREASED [None]
  - MALIGNANT NEOPLASM PROGRESSION [None]
